FAERS Safety Report 6424913-4 (Version None)
Quarter: 2009Q4

REPORT INFORMATION
  Report Type: 
  Country: None (occurrence: None)
  Receive Date: 20091103
  Receipt Date: 20090929
  Transmission Date: 20100525
  Serious: Yes (Hospitalization)
  Sender: FDA-Public Use
  Company Number: US-JNJFOC-20090908580

PATIENT

DRUGS (5)
  1. INTELENCE [Suspect]
     Indication: HIV INFECTION
     Route: 048
  2. ISENTRESS [Suspect]
     Indication: HIV INFECTION
     Route: 065
  3. VIREAD [Suspect]
     Indication: HIV INFECTION
     Route: 065
  4. KALETRA [Suspect]
     Indication: HIV INFECTION
     Route: 065
  5. BACTRIM DS [Concomitant]
     Indication: ANTIFUNGAL PROPHYLAXIS

REACTIONS (1)
  - TUBULOINTERSTITIAL NEPHRITIS [None]
